FAERS Safety Report 19909984 (Version 1)
Quarter: 2021Q4

REPORT INFORMATION
  Report Type: Report from Study
  Country: CN (occurrence: CN)
  Receive Date: 20211003
  Receipt Date: 20211003
  Transmission Date: 20220303
  Serious: Yes (Death)
  Sender: FDA-Public Use
  Company Number: CN-NOVARTISPH-NVSC2021CN188377

PATIENT
  Sex: Female

DRUGS (1)
  1. GLIVEC [Suspect]
     Active Substance: IMATINIB MESYLATE
     Indication: Gastrointestinal stromal tumour
     Dosage: 600 MG
     Route: 048
     Dates: start: 20170413

REACTIONS (2)
  - Death [Fatal]
  - Drug ineffective [Unknown]
